FAERS Safety Report 17458776 (Version 2)
Quarter: 2020Q3

REPORT INFORMATION
  Report Type: Spontaneous
  Country: FR (occurrence: FR)
  Receive Date: 20200225
  Receipt Date: 20200709
  Transmission Date: 20201102
  Serious: Yes (Other)
  Sender: FDA-Public Use
  Company Number: FR-BAYER-2020-032408

PATIENT
  Age: 67 Year
  Sex: Female

DRUGS (1)
  1. VITRAKVI [Suspect]
     Active Substance: LAROTRECTINIB
     Indication: SOFT TISSUE SARCOMA
     Dosage: 100 MG, BID
     Dates: start: 20190426

REACTIONS (3)
  - Metastases to lymph nodes [None]
  - Metastases to lung [None]
  - Soft tissue sarcoma [None]
